FAERS Safety Report 8114037-2 (Version None)
Quarter: 2012Q1

REPORT INFORMATION
  Report Type: 
  Country: None (occurrence: None)
  Receive Date: 20120203
  Receipt Date: 20120125
  Transmission Date: 20120608
  Serious: Yes (Other)
  Sender: FDA-Public Use
  Company Number: US-ASTRAZENECA-2011SE17953

PATIENT
  Age: 57 Year
  Sex: Male

DRUGS (1)
  1. NEXIUM [Suspect]
     Route: 048

REACTIONS (5)
  - MALAISE [None]
  - DRUG DOSE OMISSION [None]
  - ERECTILE DYSFUNCTION [None]
  - CEREBROVASCULAR ACCIDENT [None]
  - FEELING ABNORMAL [None]
